FAERS Safety Report 5003270-4 (Version None)
Quarter: 2006Q2

REPORT INFORMATION
  Report Type: 
  Country: None (occurrence: None)
  Receive Date: 20060512
  Receipt Date: 20060503
  Transmission Date: 20061013
  Serious: Yes (Other)
  Sender: FDA-Public Use
  Company Number: 2006-05-0190

PATIENT
  Sex: Female

DRUGS (1)
  1. INTRON A [Suspect]
     Indication: MALIGNANT MELANOMA
     Dosage: 20 MIU INTRAVENOUS
     Route: 042
     Dates: start: 20051214, end: 20060105

REACTIONS (2)
  - CASTLEMAN'S DISEASE [None]
  - LYMPHADENOPATHY [None]
